FAERS Safety Report 12316581 (Version 1)
Quarter: 2016Q2

REPORT INFORMATION
  Report Type: Spontaneous
  Country: US (occurrence: US)
  Receive Date: 20160429
  Receipt Date: 20160429
  Transmission Date: 20160815
  Serious: No
  Sender: FDA-Public Use
  Company Number: US-TEVA-650732ACC

PATIENT
  Sex: Female
  Weight: 78.09 kg

DRUGS (1)
  1. PARAGARD T 380A [Suspect]
     Active Substance: COPPER
     Indication: CONTRACEPTION
     Dates: start: 20130606, end: 20160331

REACTIONS (3)
  - Metrorrhagia [Unknown]
  - Device expulsion [Recovered/Resolved]
  - Pain [Recovered/Resolved]
